FAERS Safety Report 7452084-4 (Version None)
Quarter: 2011Q2

REPORT INFORMATION
  Report Type: 
  Country: None (occurrence: None)
  Receive Date: 20110502
  Receipt Date: 20110426
  Transmission Date: 20111010
  Serious: Yes (Hospitalization, Other)
  Sender: FDA-Public Use
  Company Number: KR-ELI_LILLY_AND_COMPANY-KR201102002763

PATIENT
  Age: 47 Year
  Sex: Male

DRUGS (1)
  1. HUMALOG MIX 75/25 [Suspect]
     Indication: TYPE 2 DIABETES MELLITUS
     Dosage: 24U MORNING, 14U EVENING
     Route: 058
     Dates: start: 20101230

REACTIONS (1)
  - PANCREATIC NEOPLASM [None]
